FAERS Safety Report 16996484 (Version 2)
Quarter: 2019Q4

REPORT INFORMATION
  Report Type: Report from Study
  Country: NL (occurrence: NL)
  Receive Date: 20191106
  Receipt Date: 20191223
  Transmission Date: 20200122
  Serious: Yes (Other)
  Sender: FDA-Public Use
  Company Number: NL-AMGEN-NLDSL2019078669

PATIENT
  Age: 81 Year
  Sex: Male

DRUGS (6)
  1. XGEVA [Suspect]
     Active Substance: DENOSUMAB
     Indication: PROSTATE CANCER METASTATIC
     Dosage: 120 MILLIGRAM (1.7 ML), Q4WK
     Route: 065
     Dates: start: 20190417
  2. XGEVA [Suspect]
     Active Substance: DENOSUMAB
     Indication: PROPHYLAXIS
     Dosage: UNK
     Route: 065
  3. CALCIUM CARBONATE W/COLECALCIFEROL [Concomitant]
     Active Substance: CALCIUM CARBONATE\CHOLECALCIFEROL
     Dosage: 2.5G/880IE (1000MG CA), QD
  4. XGEVA [Suspect]
     Active Substance: DENOSUMAB
     Dosage: UNK
     Route: 065
     Dates: start: 20191216
  5. BICALUTAMIDE. [Concomitant]
     Active Substance: BICALUTAMIDE
     Dosage: 150 MILLIGRAM, QD
  6. LEUPRORELINE [Concomitant]
     Active Substance: LEUPROLIDE
     Dosage: 30 MILLIGRAM, Q6MO

REACTIONS (4)
  - Fatigue [Recovered/Resolved]
  - Jaw fistula [Not Recovered/Not Resolved]
  - Dizziness [Recovered/Resolved]
  - Back pain [Unknown]
